FAERS Safety Report 4438941-1 (Version None)
Quarter: 2004Q3

REPORT INFORMATION
  Report Type: 
  Country: None (occurrence: None)
  Receive Date: 20040901
  Receipt Date: 20040823
  Transmission Date: 20050211
  Serious: Yes (Other)
  Sender: FDA-Public Use
  Company Number: GBWYE922222JUL04

PATIENT
  Sex: Female
  Weight: 76 kg

DRUGS (5)
  1. ENBREL [Suspect]
     Indication: RHEUMATOID ARTHRITIS
     Route: 058
     Dates: start: 20040401, end: 20040722
  2. CO-CODAMAOL [Concomitant]
     Dosage: UNKNOWN
  3. BURINEX [Concomitant]
     Dosage: UNKNOWN
  4. CITALOPRAM [Concomitant]
     Dosage: UNKNOWN
  5. LANSOPRAZOLE [Concomitant]
     Dosage: UNKNOWN

REACTIONS (2)
  - DEMYELINATION [None]
  - FACIAL PALSY [None]
